FAERS Safety Report 16666606 (Version 6)
Quarter: 2020Q1

REPORT INFORMATION
  Report Type: Report from Study
  Country: None (occurrence: US)
  Receive Date: 20190805
  Receipt Date: 20200327
  Transmission Date: 20200409
  Serious: Yes (Other)
  Sender: FDA-Public Use
  Company Number: US-ABBVIE-19K-163-2871738-00

PATIENT
  Age: 68 Year
  Sex: Male

DRUGS (6)
  1. HUMIRA [Suspect]
     Active Substance: ADALIMUMAB
     Indication: PSORIASIS
     Dosage: CITRATE FREE
     Route: 058
  2. HUMIRA [Suspect]
     Active Substance: ADALIMUMAB
     Indication: PSORIATIC ARTHROPATHY
  3. HUMIRA [Suspect]
     Active Substance: ADALIMUMAB
     Indication: PSORIASIS
     Route: 058
  4. PREDNISONE. [Suspect]
     Active Substance: PREDNISONE
     Indication: PRODUCT USED FOR UNKNOWN INDICATION
     Route: 065
  5. HUMIRA [Suspect]
     Active Substance: ADALIMUMAB
     Indication: PSORIATIC ARTHROPATHY
     Route: 058
     Dates: start: 20181001
  6. OXYCODONE [Suspect]
     Active Substance: OXYCODONE
     Indication: PRODUCT USED FOR UNKNOWN INDICATION
     Route: 065

REACTIONS (48)
  - Lung disorder [Unknown]
  - Animal scratch [Unknown]
  - Skin discolouration [Not Recovered/Not Resolved]
  - Diabetes mellitus inadequate control [Not Recovered/Not Resolved]
  - Thrombosis [Unknown]
  - Injury [Unknown]
  - Flashback [Unknown]
  - Dyspnoea [Unknown]
  - Injection site pain [Recovered/Resolved]
  - Cough [Unknown]
  - Pain [Recovered/Resolved]
  - Pain of skin [Not Recovered/Not Resolved]
  - Cataract [Unknown]
  - Adverse drug reaction [Not Recovered/Not Resolved]
  - Malaise [Unknown]
  - Panic attack [Unknown]
  - Psoriasis [Not Recovered/Not Resolved]
  - Injection site pain [Not Recovered/Not Resolved]
  - Injection site pain [Unknown]
  - Spinal disorder [Unknown]
  - Arthritis [Unknown]
  - Poor quality sleep [Not Recovered/Not Resolved]
  - Pain [Not Recovered/Not Resolved]
  - Skin lesion [Not Recovered/Not Resolved]
  - Drug dependence [Recovered/Resolved]
  - Dizziness [Unknown]
  - Auditory disorder [Unknown]
  - Overweight [Unknown]
  - Hypophagia [Unknown]
  - Dry mouth [Unknown]
  - Wound secretion [Not Recovered/Not Resolved]
  - Abdominal pain upper [Not Recovered/Not Resolved]
  - Gait disturbance [Not Recovered/Not Resolved]
  - Glycosylated haemoglobin increased [Not Recovered/Not Resolved]
  - Back disorder [Unknown]
  - Hot flush [Unknown]
  - Arthralgia [Unknown]
  - Device issue [Not Recovered/Not Resolved]
  - Loss of consciousness [Unknown]
  - Transient ischaemic attack [Unknown]
  - Memory impairment [Not Recovered/Not Resolved]
  - Incorrect dose administered [Not Recovered/Not Resolved]
  - Animal bite [Unknown]
  - Gallbladder disorder [Unknown]
  - Dyspepsia [Not Recovered/Not Resolved]
  - Drug ineffective [Not Recovered/Not Resolved]
  - Visual impairment [Unknown]
  - Hepatic enzyme increased [Unknown]

NARRATIVE: CASE EVENT DATE: 20181001
